FAERS Safety Report 7559723-8 (Version None)
Quarter: 2011Q2

REPORT INFORMATION
  Report Type: 
  Country: None (occurrence: None)
  Receive Date: 20110621
  Receipt Date: 20110607
  Transmission Date: 20111010
  Serious: Yes (Life-Threatening)
  Sender: FDA-Public Use
  Company Number: FR-ROCHE-779788

PATIENT
  Sex: Female

DRUGS (12)
  1. MIRCERA [Suspect]
     Dosage: 360 UG/0.6 ML, INJECTABLE SOLUTION
     Route: 042
     Dates: start: 20110226, end: 20110423
  2. ASPIRIN [Concomitant]
     Dosage: KARDEGIC 75
  3. REPAGLINIDE [Concomitant]
     Route: 048
  4. ACETAMINOPHEN [Concomitant]
     Indication: PAIN
     Dosage: IF REQUIRED
  5. EZETIMIBE [Concomitant]
     Route: 048
  6. LASIX [Concomitant]
     Dosage: DRUG NAME: LASILIX SPECIAL
     Route: 048
  7. ATENOLOL [Concomitant]
     Route: 048
  8. CINACALCET HYDROCHLORIDE [Concomitant]
  9. RENAGEL [Concomitant]
     Dosage: DRUG NAME: RENAGEL 800
  10. MEDIATENSYL [Concomitant]
     Route: 048
  11. FOLIC ACID [Concomitant]
  12. ACETAMINOPHEN AND TRAMADOL HCL [Concomitant]

REACTIONS (2)
  - CIRCULATORY COLLAPSE [None]
  - ANAPHYLACTOID REACTION [None]
